FAERS Safety Report 14341548 (Version 2)
Quarter: 2018Q1

REPORT INFORMATION
  Report Type: Report from Study
  Country: US (occurrence: US)
  Receive Date: 20180102
  Receipt Date: 20180206
  Transmission Date: 20180509
  Serious: Yes (Hospitalization)
  Sender: FDA-Public Use
  Company Number: US-ASTRAZENECA-2017SF18975

PATIENT
  Age: 184 Day
  Sex: Female

DRUGS (1)
  1. SYNAGIS [Suspect]
     Active Substance: PALIVIZUMAB
     Indication: CARDIAC DISORDER
     Route: 030
     Dates: start: 20171101

REACTIONS (3)
  - Acute respiratory distress syndrome [Unknown]
  - Pulmonary hypertension [Unknown]
  - Hypoxia [Unknown]

NARRATIVE: CASE EVENT DATE: 20171224
